FAERS Safety Report 4429087-7 (Version None)
Quarter: 2004Q3

REPORT INFORMATION
  Report Type: 
  Country: None (occurrence: None)
  Receive Date: 20040726
  Receipt Date: 20040318
  Transmission Date: 20050211
  Serious: No
  Sender: FDA-Public Use
  Company Number: USA040361815

PATIENT
  Age: 89 Year
  Sex: Female

DRUGS (4)
  1. FORTEO [Suspect]
     Indication: OSTEOPOROSIS
     Dates: start: 20040304
  2. PREVACID [Concomitant]
  3. ENBREL [Concomitant]
  4. SYNTHROID [Concomitant]

REACTIONS (1)
  - INJECTION SITE HAEMORRHAGE [None]
